FAERS Safety Report 7622443-5 (Version None)
Quarter: 2011Q3

REPORT INFORMATION
  Report Type: 
  Country: None (occurrence: None)
  Receive Date: 20110720
  Receipt Date: 20110713
  Transmission Date: 20111222
  Serious: Yes (Hospitalization, Other)
  Sender: FDA-Public Use
  Company Number: US-ELI_LILLY_AND_COMPANY-US201002003363

PATIENT
  Sex: Female
  Weight: 92.517 kg

DRUGS (9)
  1. BYETTA [Suspect]
     Dosage: UNK, UNK
     Dates: start: 20090623, end: 20090701
  2. M.V.I. [Concomitant]
  3. DIURETICS [Concomitant]
  4. PRAVASTATIN [Concomitant]
  5. ORAL ANTIDIABETICS [Concomitant]
  6. AMLODIPINE [Concomitant]
  7. POTASSIUM [Concomitant]
  8. HYZAAR [Concomitant]
  9. METFORMIN HCL [Concomitant]

REACTIONS (12)
  - FALL [None]
  - INJURY [None]
  - NEUROPATHY PERIPHERAL [None]
  - HEADACHE [None]
  - OEDEMA PERIPHERAL [None]
  - VOMITING [None]
  - INTENTIONAL DRUG MISUSE [None]
  - BARRETT'S OESOPHAGUS [None]
  - PAIN IN EXTREMITY [None]
  - RENAL DISORDER [None]
  - RENAL FAILURE ACUTE [None]
  - ASTHENIA [None]
